FAERS Safety Report 13286436 (Version 1)
Quarter: 2017Q1

REPORT INFORMATION
  Report Type: Spontaneous
  Country: US (occurrence: US)
  Receive Date: 20170301
  Receipt Date: 20170301
  Transmission Date: 20170428
  Serious: Yes (Death, Other)
  Sender: FDA-Public Use
  Company Number: US-BAUSCH-BL-2016-016976

PATIENT
  Age: 90 Year
  Sex: Male
  Weight: 69.01 kg

DRUGS (3)
  1. FUNGOID TINCTURE [Suspect]
     Active Substance: MICONAZOLE NITRATE
     Indication: ONYCHOMYCOSIS
     Route: 061
  2. FUNGICURE (FLUCONAZOLE) [Suspect]
     Active Substance: FLUCONAZOLE
     Indication: ONYCHOMYCOSIS
     Route: 061
  3. FUNGI NAIL (CLOTRIMAZOLE) [Suspect]
     Active Substance: CLOTRIMAZOLE
     Indication: ONYCHOMYCOSIS
     Route: 061

REACTIONS (3)
  - Blood glucose increased [Unknown]
  - Drug ineffective [Unknown]
  - Pancreatic carcinoma [Fatal]

NARRATIVE: CASE EVENT DATE: 201311
